FAERS Safety Report 6309981-2 (Version None)
Quarter: 2009Q3

REPORT INFORMATION
  Report Type: 
  Country: None (occurrence: None)
  Receive Date: 20090811
  Receipt Date: 20090728
  Transmission Date: 20100115
  Serious: Yes (Hospitalization, Other)
  Sender: FDA-Public Use
  Company Number: 238445K09USA

PATIENT
  Age: 56 Year
  Sex: Female
  Weight: 68 kg

DRUGS (2)
  1. REBIF [Suspect]
     Indication: MULTIPLE SCLEROSIS
     Dosage: 44 MCG, 3 IN 1 WEEKS, SUBCUTANEOUS
     Route: 058
     Dates: start: 20050404
  2. ANTIDEPRESSANT (ANTIDEPRESSANTS) [Concomitant]

REACTIONS (10)
  - ANAEMIA [None]
  - CEREBROVASCULAR ACCIDENT [None]
  - COELIAC DISEASE [None]
  - DIABETES MELLITUS [None]
  - HYPERTENSION [None]
  - HYPOTHYROIDISM [None]
  - LIVER DISORDER [None]
  - MYOCARDIAL INFARCTION [None]
  - PERONEAL NERVE PALSY [None]
  - TRANSIENT ISCHAEMIC ATTACK [None]
